FAERS Safety Report 6912464-X (Version None)
Quarter: 2010Q3

REPORT INFORMATION
  Report Type: 
  Country: None (occurrence: None)
  Receive Date: 20100806
  Receipt Date: 20080729
  Transmission Date: 20110219
  Serious: No
  Sender: FDA-Public Use
  Company Number: US-PFIZER INC-2008048085

PATIENT
  Sex: Female
  Weight: 72.7 kg

DRUGS (4)
  1. DETROL LA [Suspect]
     Indication: MICTURITION URGENCY
     Route: 048
     Dates: start: 19920101
  2. OXYBUTYNIN CHLORIDE [Suspect]
     Indication: MICTURITION URGENCY
  3. TROSPIUM CHLORIDE [Suspect]
     Indication: MICTURITION URGENCY
  4. ALL OTHER THERAPEUTIC PRODUCTS [Concomitant]

REACTIONS (6)
  - DRUG INEFFECTIVE [None]
  - DRY MOUTH [None]
  - GLOSSITIS [None]
  - MUSCULAR WEAKNESS [None]
  - ORAL HERPES [None]
  - STOMATITIS [None]
